FAERS Safety Report 14683353 (Version 4)
Quarter: 2018Q2

REPORT INFORMATION
  Report Type: Spontaneous
  Country: US (occurrence: US)
  Receive Date: 20180327
  Receipt Date: 20180618
  Transmission Date: 20180711
  Serious: Yes (Death)
  Sender: FDA-Public Use
  Company Number: US-PFIZER INC-2018108314

PATIENT
  Age: 73 Year
  Sex: Female
  Weight: 57 kg

DRUGS (1)
  1. IBRANCE [Suspect]
     Active Substance: PALBOCICLIB
     Indication: BREAST CANCER METASTATIC
     Dosage: 100 MG, CYCLIC (21 DAYS ON AND 7 DAYS OFF)
     Route: 048
     Dates: start: 2017, end: 2018

REACTIONS (3)
  - Death [Fatal]
  - Neoplasm progression [Unknown]
  - Cystitis [Unknown]

NARRATIVE: CASE EVENT DATE: 20180609
